FAERS Safety Report 9004737 (Version 1)
Quarter: 2013Q1

REPORT INFORMATION
  Report Type: Spontaneous
  Country: US (occurrence: None)
  Receive Date: 20130104
  Receipt Date: 20130104
  Transmission Date: 20140127
  Serious: Yes (Other)
  Sender: FDA-Public Use
  Company Number: None

PATIENT
  Sex: Male
  Weight: 54.5 kg

DRUGS (4)
  1. LAMICTAL (LAMOTRIGINE) TABLET [Suspect]
     Indication: CONVULSION
     Dosage: LAMICTAL (LAMOTRIGINE)  2 X DAY  PILLS?AUG 2012 DOSAGE INCREA DEC 2012
     Dates: start: 201208
  2. LAMICTAL (LAMOTRIGINE) TABLET [Suspect]
     Indication: BIPOLAR DISORDER
     Dosage: LAMICTAL (LAMOTRIGINE)  2 X DAY  PILLS?AUG 2012 DOSAGE INCREA DEC 2012
     Dates: start: 201208
  3. LEVETRICETAM (KEPPRA) [Concomitant]
  4. CLOMIPRAMINE [Concomitant]

REACTIONS (4)
  - Somnolence [None]
  - Disturbance in attention [None]
  - Somnolence [None]
  - Hypersomnia [None]
